FAERS Safety Report 8321659-2 (Version None)
Quarter: 2012Q2

REPORT INFORMATION
  Report Type: 
  Country: None (occurrence: None)
  Receive Date: 20120430
  Receipt Date: 20120202
  Transmission Date: 20120825
  Serious: Yes (Other)
  Sender: FDA-Public Use
  Company Number: US-UCBSA-051031

PATIENT
  Sex: Female

DRUGS (1)
  1. CIMZIA [Suspect]
     Route: 064

REACTIONS (3)
  - BRADYCARDIA FOETAL [None]
  - PREMATURE BABY [None]
  - FOETAL EXPOSURE DURING PREGNANCY [None]
